FAERS Safety Report 5093672-2 (Version None)
Quarter: 2006Q3

REPORT INFORMATION
  Report Type: 
  Country: None (occurrence: None)
  Receive Date: 20060829
  Receipt Date: 20060822
  Transmission Date: 20061208
  Serious: Yes (Other)
  Sender: FDA-Public Use
  Company Number: HQWYE964211OCT05

PATIENT
  Age: 52 Year
  Sex: Female

DRUGS (1)
  1. PREMPRO [Suspect]
     Dosage: ORAL
     Route: 048
     Dates: start: 19970101, end: 19990101

REACTIONS (11)
  - ABDOMINAL HERNIA [None]
  - ACANTHOSIS [None]
  - BREAST CANCER METASTATIC [None]
  - CHOLELITHIASIS [None]
  - DIVERTICULITIS [None]
  - HYPERKERATOSIS [None]
  - METASTASES TO LYMPH NODES [None]
  - MYASTHENIA GRAVIS [None]
  - PELVIC ABSCESS [None]
  - THROMBOSIS [None]
  - UTERINE POLYP [None]
